FAERS Safety Report 25380181 (Version 2)
Quarter: 2025Q4

REPORT INFORMATION
  Report Type: Report from Study
  Country: US (occurrence: US)
  Receive Date: 20250530
  Receipt Date: 20251001
  Transmission Date: 20260118
  Serious: Yes (Other)
  Sender: UCB
  Company Number: US-UCBSA-2025031615

PATIENT
  Age: 52 Year
  Sex: Male

DRUGS (3)
  1. BRIVARACETAM [Suspect]
     Active Substance: BRIVARACETAM
     Indication: Seizure
     Dosage: 75 MILLIGRAM, 2X/DAY (BID)
     Dates: start: 2024
  2. BRIVARACETAM [Suspect]
     Active Substance: BRIVARACETAM
     Indication: Epilepsy
     Dosage: 100 MILLIGRAM, 2X/DAY (BID)
     Dates: end: 20250923
  3. NAYZILAM [Suspect]
     Active Substance: MIDAZOLAM
     Indication: Partial seizures
     Dosage: SPRAY 5MG IN EACH NOSTRIL AS NEEDED
     Route: 045

REACTIONS (5)
  - Seizure [Unknown]
  - Partial seizures [Unknown]
  - Aphasia [Unknown]
  - Product availability issue [Unknown]
  - Therapy interrupted [Unknown]

NARRATIVE: CASE EVENT DATE: 20250523
